FAERS Safety Report 10311323 (Version 1)
Quarter: 2014Q3

REPORT INFORMATION
  Report Type: Spontaneous
  Country: CA (occurrence: CA)
  Receive Date: 20140717
  Receipt Date: 20140717
  Transmission Date: 20150326
  Serious: Yes (Other)
  Sender: FDA-Public Use
  Company Number: CA-BRISTOL-MYERS SQUIBB COMPANY-21197694

PATIENT
  Age: 67 Year
  Sex: Female

DRUGS (4)
  1. BABY ASPIRIN [Concomitant]
     Active Substance: ASPIRIN
  2. BYETTA [Suspect]
     Active Substance: EXENATIDE
     Indication: DIABETES MELLITUS
     Dosage: 1DF=10U, 5 U?INT FOR 2 WKS
     Dates: start: 201405
  3. METFORMIN HCL [Suspect]
     Active Substance: METFORMIN HYDROCHLORIDE
     Indication: DIABETES MELLITUS
  4. LANTUS [Concomitant]
     Active Substance: INSULIN GLARGINE
     Dates: start: 201311

REACTIONS (7)
  - Diarrhoea [Unknown]
  - Muscular weakness [Unknown]
  - Vomiting [Unknown]
  - Weight decreased [Unknown]
  - Neuropathy peripheral [Unknown]
  - Rhinitis [Unknown]
  - Nausea [Unknown]
